FAERS Safety Report 21195860 (Version 3)
Quarter: 2023Q4

REPORT INFORMATION
  Report Type: Spontaneous
  Country: AU (occurrence: AU)
  Receive Date: 20220810
  Receipt Date: 20231207
  Transmission Date: 20240110
  Serious: Yes (Other)
  Sender: FDA-Public Use
  Company Number: AU-009507513-2206AUS006317

PATIENT
  Age: 74 Year
  Sex: Female
  Weight: 47 kg

DRUGS (7)
  1. LAGEVRIO [Suspect]
     Active Substance: MOLNUPIRAVIR
     Indication: SARS-CoV-2 test positive
     Dosage: FIRST DOSE, 400 MILLIGRAM (MG) ONCE DAILY
     Route: 048
     Dates: start: 20220513, end: 202205
  2. LAGEVRIO [Suspect]
     Active Substance: MOLNUPIRAVIR
     Dosage: DROPPED TO 200 MILLIGRAM (MG), COMPLETED THE DOSE FOR 5 DAYS
     Route: 048
     Dates: start: 202205, end: 202205
  3. EPILIM [Concomitant]
     Active Substance: VALPROATE SODIUM
     Indication: Schizophrenia
     Dosage: 100 MILLIGRAM, BID, FOR YEARS
     Route: 048
  4. RABEPRAZOLE SODIUM [Concomitant]
     Active Substance: RABEPRAZOLE SODIUM
     Dosage: 20 MILLIGRAM, FOR YEARS
  5. CLOZAPINE [Concomitant]
     Active Substance: CLOZAPINE
     Indication: Schizophrenia
  6. ACTONEL EC [Concomitant]
     Dosage: ONCE A WEEK, FOR YEARS
     Route: 048
  7. VAGIFEM [Concomitant]
     Active Substance: ESTRADIOL

REACTIONS (3)
  - Dizziness [Recovered/Resolved]
  - Hypotension [Recovered/Resolved]
  - Off label use [Unknown]

NARRATIVE: CASE EVENT DATE: 20220513
